FAERS Safety Report 12224671 (Version 3)
Quarter: 2016Q2

REPORT INFORMATION
  Report Type: Spontaneous
  Country: US (occurrence: US)
  Receive Date: 20160331
  Receipt Date: 20160503
  Transmission Date: 20160815
  Serious: No
  Sender: FDA-Public Use
  Company Number: US-009507513-1603USA011925

PATIENT
  Sex: Female
  Weight: 78.5 kg

DRUGS (1)
  1. NEXPLANON [Suspect]
     Active Substance: ETONOGESTREL
     Dosage: UNK
     Route: 059
     Dates: start: 20150409, end: 20160323

REACTIONS (2)
  - Adverse event [Unknown]
  - Device breakage [Recovered/Resolved]
